FAERS Safety Report 8985762 (Version 2)
Quarter: 2013Q1

REPORT INFORMATION
  Report Type: Spontaneous
  Country: JP (occurrence: JP)
  Receive Date: 20121226
  Receipt Date: 20130318
  Transmission Date: 20140127
  Serious: Yes (Hospitalization, Other)
  Sender: FDA-Public Use
  Company Number: JP-ELI_LILLY_AND_COMPANY-JP201209008123

PATIENT
  Age: 85 Year
  Sex: Female

DRUGS (1)
  1. FORTEO [Suspect]
     Dosage: UNK
     Route: 058
     Dates: start: 20120910

REACTIONS (6)
  - Varicose vein ruptured [Unknown]
  - Fall [Recovered/Resolved]
  - Hypoglycaemia [Unknown]
  - Spinal compression fracture [Unknown]
  - Local swelling [Recovered/Resolved]
  - Back pain [Unknown]
